FAERS Safety Report 16790163 (Version 2)
Quarter: 2020Q2

REPORT INFORMATION
  Report Type: Other
  Country: DE (occurrence: DE)
  Receive Date: 20190910
  Receipt Date: 20200526
  Transmission Date: 20200713
  Serious: Yes (Congenital Anomaly, Other)
  Sender: FDA-Public Use
  Company Number: DE-EMBRYOTOX-20101176

PATIENT
  Age: 9 Month
  Sex: Male
  Weight: 3.6 kg

DRUGS (3)
  1. VIMPAT [Suspect]
     Active Substance: LACOSAMIDE
     Indication: EPILEPSY
     Dosage: 200 MG/D (100-0-100) FOR ONE YEAR
     Route: 064
     Dates: start: 200911, end: 20100811
  2. LAMOTRIGIN [Suspect]
     Active Substance: LAMOTRIGINE
     Indication: EPILEPSY
     Dosage: 700 MG/D (225-225-250) FOR TWO YEARS
     Route: 064
     Dates: start: 20091111, end: 20100811
  3. FOLSAEURE [Concomitant]
     Active Substance: FOLIC ACID
     Indication: PROPHYLAXIS OF NEURAL TUBE DEFECT
     Dosage: 5 MG/D / ALSO PRECONCEPTIONAL
     Route: 064
     Dates: start: 200911

REACTIONS (5)
  - Atrial septal defect [Unknown]
  - Coarctation of the aorta [Unknown]
  - Hyperbilirubinaemia neonatal [Unknown]
  - Maternal exposure during pregnancy [Unknown]
  - Bradycardia neonatal [Recovered/Resolved]

NARRATIVE: CASE EVENT DATE: 200911
